FAERS Safety Report 10847377 (Version 3)
Quarter: 2015Q2

REPORT INFORMATION
  Report Type: Spontaneous
  Country: US (occurrence: US)
  Receive Date: 20150220
  Receipt Date: 20150522
  Transmission Date: 20150821
  Serious: No
  Sender: FDA-Public Use
  Company Number: US-PFIZER INC-2015065399

PATIENT
  Age: 61 Year
  Sex: Male

DRUGS (7)
  1. SUTENT [Suspect]
     Active Substance: SUNITINIB MALATE
     Dosage: 37.5 MG, CYCLIC (37.5 MG DAILY FOR 28 DAYS FOLLOWED BY 14 DAYS REST NOW 21 DAYS REST)
     Route: 048
  2. OMEPRAZOLE. [Concomitant]
     Active Substance: OMEPRAZOLE
     Indication: DYSPEPSIA
     Dosage: 40 MG, 1X/DAY
     Dates: start: 2005
  3. K PHOS [Concomitant]
     Indication: BLOOD PHOSPHORUS DECREASED
     Dosage: UNK
  4. SUTENT [Suspect]
     Active Substance: SUNITINIB MALATE
     Indication: METASTATIC RENAL CELL CARCINOMA
     Dosage: 50 MG, DAILY
     Route: 048
     Dates: start: 20040920
  5. HYDROCHOROTHIAZIDE [Concomitant]
     Active Substance: HYDROCHLOROTHIAZIDE
     Indication: HYPERTENSION
     Dosage: 25 MG, ABOUT LAST 3 WEEKS OF CYCLE
     Dates: start: 2005
  6. VITAMIN B6 [Concomitant]
     Active Substance: PYRIDOXINE HYDROCHLORIDE
     Indication: SKIN DISORDER
     Dosage: 100 MG, 1X/DAY
     Dates: start: 2005
  7. SUTENT [Suspect]
     Active Substance: SUNITINIB MALATE
     Dosage: 37.5 MG, CYCLIC (4 WEEKS ON 3 WEEKS OFF)
     Dates: start: 20040926

REACTIONS (8)
  - Glossodynia [Recovering/Resolving]
  - Hypertension [Recovering/Resolving]
  - Gingival pain [Recovering/Resolving]
  - Mucosal inflammation [Recovered/Resolved]
  - Gastric disorder [Unknown]
  - Tongue dry [Recovering/Resolving]
  - Diarrhoea [Recovered/Resolved]
  - Ejection fraction decreased [Recovered/Resolved]

NARRATIVE: CASE EVENT DATE: 2004
